FAERS Safety Report 18124348 (Version 1)
Quarter: 2020Q3

REPORT INFORMATION
  Report Type: Spontaneous
  Country: US (occurrence: US)
  Receive Date: 20200807
  Receipt Date: 20200807
  Transmission Date: 20201103
  Serious: No
  Sender: FDA-Public Use
  Company Number: US-ASTRAZENECA-2020SE97621

PATIENT
  Sex: Male

DRUGS (1)
  1. NEXIUM 24HR [Suspect]
     Active Substance: ESOMEPRAZOLE MAGNESIUM
     Indication: ANTACID THERAPY
     Dosage: 1 DF, 2X/DAY(IN THE MORNING AND ANOTHER ONE AT NIGHT)
     Route: 065

REACTIONS (3)
  - Intentional product use issue [Unknown]
  - Cardiac disorder [Unknown]
  - Bone loss [Unknown]
